FAERS Safety Report 7945533-6 (Version None)
Quarter: 2011Q4

REPORT INFORMATION
  Report Type: 
  Country: None (occurrence: None)
  Receive Date: 20111129
  Receipt Date: 20110505
  Transmission Date: 20120403
  Serious: Yes (Other)
  Sender: FDA-Public Use
  Company Number: SE-ASTRAZENECA-2011SE26149

PATIENT
  Age: 48 Year
  Sex: Male

DRUGS (6)
  1. PULMICORT [Suspect]
     Indication: ASTHMA
     Route: 055
  2. ASPIRIN [Concomitant]
  3. ACETYLCYSTEINE [Concomitant]
  4. SYMBICORT [Suspect]
     Indication: ASTHMA
     Dosage: 4 DF
     Route: 055
     Dates: start: 20050512
  5. PREDNISOLONE [Concomitant]
  6. RHINOCORT [Concomitant]
     Route: 045

REACTIONS (1)
  - ADRENAL INSUFFICIENCY [None]
